FAERS Safety Report 6674064-9 (Version None)
Quarter: 2010Q2

REPORT INFORMATION
  Report Type: 
  Country: None (occurrence: None)
  Receive Date: 20100409
  Receipt Date: 20100401
  Transmission Date: 20101027
  Serious: Yes (Other)
  Sender: FDA-Public Use
  Company Number: GB-BRISTOL-MYERS SQUIBB COMPANY-15045768

PATIENT
  Age: 81 Year
  Sex: Female
  Weight: 55 kg

DRUGS (4)
  1. ABILIFY [Suspect]
     Indication: SCHIZOAFFECTIVE DISORDER
     Route: 048
     Dates: start: 20100202, end: 20100317
  2. ESCITALOPRAM [Concomitant]
     Indication: SCHIZOAFFECTIVE DISORDER
     Route: 048
     Dates: start: 20091014
  3. LEVOTHYROXINE SODIUM [Concomitant]
     Indication: HYPOTHYROIDISM
     Dosage: ROUTE: OROMUCOSAL
     Route: 048
  4. OLANZAPINE [Concomitant]
     Indication: SCHIZOAFFECTIVE DISORDER
     Dosage: INCREASED DOSES UPTO 15MG/DAY.
     Route: 048
     Dates: start: 20091103, end: 20100202

REACTIONS (4)
  - LACK OF SPONTANEOUS SPEECH [None]
  - LETHARGY [None]
  - SOCIAL AVOIDANT BEHAVIOUR [None]
  - WITHDRAWAL SYNDROME [None]
